FAERS Safety Report 6146867-0 (Version None)
Quarter: 2009Q2

REPORT INFORMATION
  Report Type: 
  Country: None (occurrence: None)
  Receive Date: 20090407
  Receipt Date: 20090326
  Transmission Date: 20091009
  Serious: Yes (Other)
  Sender: FDA-Public Use
  Company Number: US-PFIZER INC-2009190380

PATIENT
  Sex: Female
  Weight: 61.224 kg

DRUGS (3)
  1. NEURONTIN [Suspect]
     Dosage: 600 MG, 2X/DAY
     Route: 048
  2. SEROQUEL [Concomitant]
     Dosage: 600 MG, 2X/DAY
     Route: 048
  3. ABILIFY [Concomitant]

REACTIONS (3)
  - PLATELET COUNT DECREASED [None]
  - RED BLOOD CELL COUNT DECREASED [None]
  - WHITE BLOOD CELL COUNT DECREASED [None]
